APPROVED DRUG PRODUCT: NITISINONE
Active Ingredient: NITISINONE
Strength: 10MG
Dosage Form/Route: CAPSULE;ORAL
Application: A211041 | Product #003 | TE Code: AB
Applicant: NOVITIUM PHARMA LLC
Approved: Aug 26, 2019 | RLD: No | RS: No | Type: RX